FAERS Safety Report 7440870-6 (Version None)
Quarter: 2011Q2

REPORT INFORMATION
  Report Type: 
  Country: None (occurrence: None)
  Receive Date: 20110427
  Receipt Date: 20110323
  Transmission Date: 20111010
  Serious: Yes (Other)
  Sender: FDA-Public Use
  Company Number: US-BAYER-201040055NA

PATIENT
  Age: 32 Year
  Sex: Female
  Weight: 74.376 kg

DRUGS (5)
  1. YAZ [Suspect]
     Indication: PREMENSTRUAL SYNDROME
     Route: 048
     Dates: start: 20070901, end: 20080901
  2. GLUCOSAMINE [GLUCOSAMINE] [Concomitant]
     Indication: DYSMENORRHOEA
  3. PREVPAC [Concomitant]
  4. GLUCOSAMINE [GLUCOSAMINE] [Concomitant]
     Indication: PREMENSTRUAL SYNDROME
  5. YAZ [Suspect]
     Indication: DYSMENORRHOEA

REACTIONS (5)
  - ABDOMINAL DISCOMFORT [None]
  - CHOLECYSTITIS CHRONIC [None]
  - ABDOMINAL PAIN [None]
  - GALLBLADDER DISORDER [None]
  - CHOLELITHIASIS [None]
